FAERS Safety Report 8846897 (Version 2)
Quarter: 2013Q2

REPORT INFORMATION
  Report Type: Spontaneous
  Country: US (occurrence: None)
  Receive Date: 20121016
  Receipt Date: 20130506
  Transmission Date: 20140414
  Serious: Yes (Death, Hospitalization, Other)
  Sender: FDA-Public Use
  Company Number: ADR-2012-01870

PATIENT
  Age: 47 Year
  Sex: Female

DRUGS (2)
  1. LIORESAL INTRATHECAL (BACLOFEN INJECTION) [Suspect]
     Indication: MUSCLE SPASTICITY
  2. LIORESAL INTRATHECAL (BACLOFEN INJECTION) [Suspect]
     Indication: CEREBROVASCULAR ACCIDENT

REACTIONS (1)
  - Lymphoma [None]
